FAERS Safety Report 4626358-6 (Version None)
Quarter: 2005Q2

REPORT INFORMATION
  Report Type: 
  Country: None (occurrence: None)
  Receive Date: 20050404
  Receipt Date: 20050318
  Transmission Date: 20051028
  Serious: Yes (Hospitalization)
  Sender: FDA-Public Use
  Company Number: FR-GLAXOSMITHKLINE-B0376097A

PATIENT
  Age: 72 Year
  Sex: Female

DRUGS (9)
  1. PAROXETINE HYDROCHLORIDE [Suspect]
     Indication: DEPRESSION
     Route: 048
     Dates: start: 20050211, end: 20050301
  2. SKENAN LP [Suspect]
     Indication: ABDOMINAL PAIN
     Dosage: 30MG TWICE PER DAY
     Route: 048
  3. MEPRONIZINE [Concomitant]
     Route: 048
     Dates: start: 20050211
  4. ATHYMIL [Concomitant]
     Indication: DEPRESSION
     Route: 048
     Dates: end: 20050211
  5. IMOVANE [Concomitant]
     Route: 048
     Dates: end: 20050211
  6. LORAZEPAM [Concomitant]
     Dosage: 2MG PER DAY
     Route: 048
  7. SECTRAL [Concomitant]
     Indication: HYPERTENSION
     Route: 048
  8. NICARDIPINE HCL [Concomitant]
     Route: 048
  9. OGAST [Concomitant]
     Route: 048

REACTIONS (3)
  - ACUTE PULMONARY OEDEMA [None]
  - DRUG INTERACTION [None]
  - HYPERTENSION [None]
